FAERS Safety Report 14374451 (Version 4)
Quarter: 2018Q3

REPORT INFORMATION
  Report Type: Report from Study
  Country: US (occurrence: US)
  Receive Date: 20180111
  Receipt Date: 20180912
  Transmission Date: 20181010
  Serious: Yes (Hospitalization, Other)
  Sender: FDA-Public Use
  Company Number: US-UCBSA-2017024179

PATIENT
  Age: 77 Year
  Sex: Female

DRUGS (7)
  1. ROTIGOTINE [Suspect]
     Active Substance: ROTIGOTINE
     Indication: PARKINSON^S DISEASE
     Dosage: 8 MG, ONCE DAILY (QD)
  2. ROTIGOTINE [Suspect]
     Active Substance: ROTIGOTINE
     Dosage: 6 MG
  3. ROTIGOTINE [Suspect]
     Active Substance: ROTIGOTINE
     Dosage: 4 MG, ONCE DAILY (QD)
     Dates: start: 2017
  4. MORPHINE [Concomitant]
     Active Substance: MORPHINE
     Indication: RIB FRACTURE
  5. ROTIGOTINE [Suspect]
     Active Substance: ROTIGOTINE
     Dosage: PATIENT CUTTING 8 MG PATCHES
  6. ENTACAPONE. [Suspect]
     Active Substance: ENTACAPONE
     Indication: PRODUCT USED FOR UNKNOWN INDICATION
     Dosage: UNK
     Dates: end: 201807
  7. CEPHALEXIN. [Concomitant]
     Active Substance: CEPHALEXIN
     Indication: CELLULITIS

REACTIONS (9)
  - Cellulitis [Recovered/Resolved]
  - Rib fracture [Recovering/Resolving]
  - Fall [Not Recovered/Not Resolved]
  - Foot fracture [Recovered/Resolved]
  - Rotator cuff syndrome [Not Recovered/Not Resolved]
  - Intentional product misuse [Unknown]
  - Hyperaesthesia [Recovered/Resolved]
  - Rash [Recovered/Resolved]
  - Product adhesion issue [Unknown]

NARRATIVE: CASE EVENT DATE: 2017
